FAERS Safety Report 9834566 (Version 1)
Quarter: 2014Q1

REPORT INFORMATION
  Report Type: Spontaneous
  Country: LT (occurrence: LT)
  Receive Date: 20140122
  Receipt Date: 20140122
  Transmission Date: 20141002
  Serious: Yes (Hospitalization)
  Sender: FDA-Public Use
  Company Number: LT-PFIZER INC-2014012772

PATIENT
  Age: 50 Year
  Sex: Male
  Weight: 180 kg

DRUGS (2)
  1. XANAX [Suspect]
     Indication: OVERDOSE
     Dosage: UNK
     Route: 048
     Dates: start: 20130207
  2. XANAX [Suspect]
     Indication: SUICIDE ATTEMPT

REACTIONS (3)
  - Overdose [Recovered/Resolved]
  - Suicide attempt [Recovered/Resolved]
  - Somnolence [Recovered/Resolved]
